FAERS Safety Report 8836190 (Version 2)
Quarter: 2012Q4

REPORT INFORMATION
  Report Type: 
  Country: US (occurrence: US)
  Receive Date: 20121011
  Receipt Date: 20121029
  Transmission Date: 20130627
  Serious: Yes (Death)
  Sender: FDA-Public Use
  Company Number: US-ROCHE-1144039

PATIENT
  Age: 55 Year
  Sex: Male
  Weight: 68.1 kg

DRUGS (2)
  1. ZELBORAF [Suspect]
     Indication: MALIGNANT MELANOMA
     Route: 048
     Dates: start: 20120720
  2. MEGACE [Concomitant]
     Route: 048
     Dates: start: 20120717

REACTIONS (1)
  - Death [Fatal]
